FAERS Safety Report 15981722 (Version 1)
Quarter: 2019Q1

REPORT INFORMATION
  Report Type: Spontaneous
  Country: AF (occurrence: AF)
  Receive Date: 20190219
  Receipt Date: 20190219
  Transmission Date: 20190418
  Serious: Yes (Death, Other)
  Sender: FDA-Public Use
  Company Number: None

PATIENT
  Age: 61 Year
  Sex: Female
  Weight: 81 kg

DRUGS (7)
  1. VERZENIO [Suspect]
     Active Substance: ABEMACICLIB
     Indication: BREAST CANCER
     Route: 048
     Dates: start: 20181224
  2. ASPIRIN. [Concomitant]
     Active Substance: ASPIRIN
  3. METOPROOL TARTRATE [Concomitant]
  4. IBRANCE [Concomitant]
     Active Substance: PALBOCICLIB
  5. ATORVASTATIN [Concomitant]
     Active Substance: ATORVASTATIN
  6. LETROZOLE. [Concomitant]
     Active Substance: LETROZOLE
  7. TYLENOL 8 HR ARTHRITIS PAIN [Concomitant]
     Active Substance: ACETAMINOPHEN

REACTIONS (1)
  - Disease progression [None]
